FAERS Safety Report 8554382-X (Version None)
Quarter: 2012Q3

REPORT INFORMATION
  Report Type: 
  Country: None (occurrence: None)
  Receive Date: 20120731
  Receipt Date: 20120726
  Transmission Date: 20120928
  Serious: Yes (Congenital Anomaly)
  Sender: FDA-Public Use
  Company Number: US-FRI-1000036740

PATIENT
  Sex: Male

DRUGS (1)
  1. LEXAPRO [Suspect]
     Route: 064

REACTIONS (4)
  - PULMONARY VALVE STENOSIS [None]
  - TRANSPOSITION OF THE GREAT VESSELS [None]
  - DOUBLE OUTLET RIGHT VENTRICLE [None]
  - VENTRICULAR SEPTAL DEFECT [None]
